FAERS Safety Report 16023845 (Version 1)
Quarter: 2019Q1

REPORT INFORMATION
  Report Type: Spontaneous
  Country: US (occurrence: US)
  Receive Date: 20190301
  Receipt Date: 20190301
  Transmission Date: 20190418
  Serious: Yes (Other)
  Sender: FDA-Public Use
  Company Number: PHHY2019US043431

PATIENT

DRUGS (9)
  1. METHYLAMPHETAMINE [Suspect]
     Active Substance: METHAMPHETAMINE
     Indication: FOETAL EXPOSURE DURING PREGNANCY
     Dosage: UNK
     Route: 064
  2. GABAPENTIN. [Suspect]
     Active Substance: GABAPENTIN
     Indication: FOETAL EXPOSURE DURING PREGNANCY
     Route: 064
  3. SUBUTEX [Suspect]
     Active Substance: BUPRENORPHINE HYDROCHLORIDE
     Indication: FOETAL EXPOSURE DURING PREGNANCY
     Route: 064
  4. MORPHINE [Suspect]
     Active Substance: MORPHINE
     Indication: FOETAL EXPOSURE DURING PREGNANCY
     Dosage: UNK
     Route: 064
  5. AMPHETAMINE [Suspect]
     Active Substance: AMPHETAMINE
     Indication: FOETAL EXPOSURE DURING PREGNANCY
     Dosage: UNK
     Route: 064
  6. PROMETHAZINE [Suspect]
     Active Substance: PROMETHAZINE\PROMETHAZINE HYDROCHLORIDE
     Indication: FOETAL EXPOSURE DURING PREGNANCY
     Dosage: UNK
     Route: 064
  7. NALOXONE [Suspect]
     Active Substance: NALOXONE
     Indication: FOETAL EXPOSURE DURING PREGNANCY
     Route: 064
  8. FENTANYL. [Suspect]
     Active Substance: FENTANYL
     Indication: FOETAL EXPOSURE DURING PREGNANCY
     Dosage: UNK
     Route: 064
  9. COCAINE [Suspect]
     Active Substance: COCAINE
     Indication: FOETAL EXPOSURE DURING PREGNANCY
     Dosage: UNK
     Route: 064

REACTIONS (20)
  - Hyperreflexia [Unknown]
  - Foetal exposure during pregnancy [Unknown]
  - Diarrhoea [Unknown]
  - Musculoskeletal stiffness [Unknown]
  - Hypertonia [Unknown]
  - Crying [Unknown]
  - Initial insomnia [Recovering/Resolving]
  - Gastrooesophageal reflux disease [Unknown]
  - Tachypnoea [Unknown]
  - Infantile back arching [Unknown]
  - Tongue movement disturbance [Unknown]
  - Blepharospasm [Recovering/Resolving]
  - Poor feeding infant [Recovering/Resolving]
  - Movement disorder [Unknown]
  - Drug withdrawal syndrome neonatal [Unknown]
  - Tremor [Unknown]
  - Myoclonus [Unknown]
  - Irritability [Unknown]
  - Eye movement disorder [Recovering/Resolving]
  - Livedo reticularis [Unknown]
